FAERS Safety Report 5593672-X (Version None)
Quarter: 2008Q1

REPORT INFORMATION
  Report Type: 
  Country: None (occurrence: None)
  Receive Date: 20080116
  Receipt Date: 20080111
  Transmission Date: 20080703
  Serious: Yes (Other)
  Sender: FDA-Public Use
  Company Number: US-ASTRAZENECA-2008UW00841

PATIENT
  Age: 78 Year
  Sex: Female

DRUGS (2)
  1. ARIMIDEX [Suspect]
     Route: 048
  2. BONIVA [Concomitant]

REACTIONS (1)
  - EPISTAXIS [None]
